FAERS Safety Report 4616573-X (Version None)
Quarter: 2005Q2

REPORT INFORMATION
  Report Type: 
  Country: None (occurrence: None)
  Receive Date: 20050311
  Receipt Date: 20041222
  Transmission Date: 20051028
  Serious: No
  Sender: FDA-Public Use
  Company Number: 2004-00969

PATIENT
  Age: 64 Year
  Sex: Female
  Weight: 74.8 kg

DRUGS (1)
  1. VELCADE [Suspect]
     Indication: MULTIPLE MYELOMA
     Dates: start: 20041011

REACTIONS (2)
  - DRUG HYPERSENSITIVITY [None]
  - NEUROPATHY PERIPHERAL [None]
